FAERS Safety Report 8586227-6 (Version None)
Quarter: 2012Q3

REPORT INFORMATION
  Report Type: 
  Country: None (occurrence: None)
  Receive Date: 20120810
  Receipt Date: 20120802
  Transmission Date: 20120928
  Serious: Yes (Other)
  Sender: FDA-Public Use
  Company Number: US-BAYER-2012-070025

PATIENT
  Age: 25 Year
  Sex: Female

DRUGS (1)
  1. MIRENA [Suspect]
     Indication: CONTRACEPTION
     Dosage: 20 MCG/24HR, CONT
     Route: 015
     Dates: start: 20120413, end: 20120719

REACTIONS (13)
  - ABDOMINAL DISTENSION [None]
  - ABDOMINAL PAIN [None]
  - POLYMENORRHAGIA [None]
  - PATIENT-DEVICE INCOMPATIBILITY [None]
  - BREAST TENDERNESS [None]
  - OEDEMA PERIPHERAL [None]
  - BACK PAIN [None]
  - ACNE [None]
  - POST PROCEDURAL HAEMORRHAGE [None]
  - INFECTION [None]
  - MEDICAL DEVICE DISCOMFORT [None]
  - DISCOMFORT [None]
  - HIRSUTISM [None]
